FAERS Safety Report 6872641-3 (Version None)
Quarter: 2010Q3

REPORT INFORMATION
  Report Type: 
  Country: None (occurrence: None)
  Receive Date: 20100723
  Receipt Date: 20081013
  Transmission Date: 20110219
  Serious: No
  Sender: FDA-Public Use
  Company Number: US-PFIZER INC-2008086816

PATIENT
  Sex: Female
  Weight: 56.7 kg

DRUGS (1)
  1. CHANTIX [Suspect]
     Indication: SMOKING CESSATION THERAPY
     Dates: start: 20081005

REACTIONS (8)
  - ANGER [None]
  - ASTHENIA [None]
  - DEPRESSION [None]
  - EMOTIONAL DISORDER [None]
  - IRRITABILITY [None]
  - MALAISE [None]
  - NAUSEA [None]
  - NERVOUSNESS [None]
